FAERS Safety Report 10169677 (Version 1)
Quarter: 2014Q2

REPORT INFORMATION
  Report Type: Spontaneous
  Country: BR (occurrence: BR)
  Receive Date: 20140513
  Receipt Date: 20140513
  Transmission Date: 20141212
  Serious: Yes (Other)
  Sender: FDA-Public Use
  Company Number: BR-PFIZER INC-2014128026

PATIENT
  Age: 67 Year
  Sex: Male
  Weight: 105 kg

DRUGS (2)
  1. CELEBRA [Suspect]
     Indication: ARTHRALGIA
     Dosage: 200 MG (1 CAPSULE), DAILY
     Route: 048
     Dates: start: 1981
  2. OLMETEC HCT [Concomitant]
     Indication: HYPERTENSION
     Dosage: HYDROCHLOROTHIAZIDE20/OLMESARTAN MEDOXOMIL12.5 MG DAILY (1 TABLET)

REACTIONS (1)
  - Lower limb fracture [Unknown]
